FAERS Safety Report 7369886-5 (Version None)
Quarter: 2011Q1

REPORT INFORMATION
  Report Type: 
  Country: None (occurrence: None)
  Receive Date: 20110318
  Receipt Date: 20110318
  Transmission Date: 20110831
  Serious: Yes (Life-Threatening)
  Sender: FDA-Public Use
  Company Number: None

PATIENT
  Age: 53 Year
  Sex: Male
  Weight: 95.2554 kg

DRUGS (1)
  1. CARAC [Suspect]
     Indication: PRECANCEROUS CELLS PRESENT
     Dosage: PEA SIZED AMOUNT ONCE DAILY
     Dates: start: 20110307, end: 20110316

REACTIONS (6)
  - TONGUE DISORDER [None]
  - MUSCLE SPASMS [None]
  - VIRAL INFECTION [None]
  - CHILLS [None]
  - DIARRHOEA [None]
  - ABDOMINAL PAIN UPPER [None]
